FAERS Safety Report 9283205 (Version 1)
Quarter: 2013Q2

REPORT INFORMATION
  Report Type: Spontaneous
  Country: US (occurrence: US)
  Receive Date: 20130510
  Receipt Date: 20130510
  Transmission Date: 20140414
  Serious: No
  Sender: FDA-Public Use
  Company Number: US-GLAXOSMITHKLINE-A0988333A

PATIENT
  Age: 81 Year
  Sex: Female
  Weight: 71.4 kg

DRUGS (5)
  1. TYKERB [Suspect]
     Indication: BREAST CANCER
     Dosage: 1000MG PER DAY
     Route: 048
     Dates: start: 20120717
  2. HERCEPTIN [Concomitant]
     Dosage: 504MG CYCLIC
     Route: 042
  3. LORTAB [Concomitant]
  4. FENTANYL [Concomitant]
  5. AROMASIN [Concomitant]

REACTIONS (1)
  - Diarrhoea [Recovered/Resolved]
